FAERS Safety Report 4881238-6 (Version None)
Quarter: 2005Q4

REPORT INFORMATION
  Report Type: 
  Country: None (occurrence: None)
  Receive Date: 20051212
  Receipt Date: 20050920
  Transmission Date: 20060501
  Serious: Yes (Hospitalization)
  Sender: FDA-Public Use
  Company Number: 2005-00978

PATIENT
  Age: 65 Year
  Sex: Male
  Weight: 95.2 kg

DRUGS (5)
  1. VELCADE [Suspect]
     Indication: MULTIPLE MYELOMA
     Dosage: 1.30 MG/M2, IV BOLUS
     Route: 040
     Dates: start: 20050412, end: 20050419
  2. SODIUM CHLORIDE [Concomitant]
  3. ACETAMINOPHEN [Concomitant]
  4. MILK OF MAGNESIA TAB [Concomitant]
  5. HYDROCHLOROTHIAZIDE [Concomitant]

REACTIONS (1)
  - FEBRILE NEUTROPENIA [None]
